FAERS Safety Report 10370395 (Version 1)
Quarter: 2014Q3

REPORT INFORMATION
  Report Type: Spontaneous
  Country: US (occurrence: US)
  Receive Date: 20140808
  Receipt Date: 20140808
  Transmission Date: 20150326
  Serious: Yes (Disabling, Other)
  Sender: FDA-Public Use
  Company Number: US-BAYER-2014-114030

PATIENT
  Sex: Male

DRUGS (1)
  1. CIPRO [Suspect]
     Active Substance: CIPROFLOXACIN HYDROCHLORIDE
     Indication: URINARY TRACT INFECTION

REACTIONS (12)
  - Mitochondrial DNA mutation [None]
  - Neuropathy peripheral [None]
  - Ligament disorder [None]
  - Dermatitis exfoliative [None]
  - Purpura [None]
  - Peripheral swelling [None]
  - Testicular pain [None]
  - Tendonitis [None]
  - Alopecia [None]
  - Device breakage [None]
  - Disability [None]
  - Bone disorder [None]
